FAERS Safety Report 23601435 (Version 1)
Quarter: 2024Q1

REPORT INFORMATION
  Report Type: Spontaneous
  Country: US (occurrence: None)
  Receive Date: 20240305
  Receipt Date: 20240305
  Transmission Date: 20240410
  Serious: Yes (Other)
  Sender: FDA-Public Use
  Company Number: None

PATIENT
  Age: 16 Year
  Sex: Male

DRUGS (1)
  1. VIGABATRIN [Suspect]
     Active Substance: VIGABATRIN
     Indication: Muscle spasms
     Dosage: FREQUENCY : TWICE A DAY;?
     Route: 048
     Dates: start: 202206

REACTIONS (2)
  - Drug ineffective [None]
  - Seizure [None]

NARRATIVE: CASE EVENT DATE: 20240201
